FAERS Safety Report 16277090 (Version 4)
Quarter: 2019Q3

REPORT INFORMATION
  Report Type: Spontaneous
  Country: US (occurrence: US)
  Receive Date: 20190506
  Receipt Date: 20190808
  Transmission Date: 20191004
  Serious: Yes (Hospitalization)
  Sender: FDA-Public Use
  Company Number: US-PFIZER INC-2019187830

PATIENT
  Age: 72 Year
  Sex: Female
  Weight: 65.77 kg

DRUGS (6)
  1. JANTOVEN [Interacting]
     Active Substance: WARFARIN SODIUM
     Indication: BLOOD DISORDER
     Dosage: 4 MG, UNK (4 MG 3 DAYS)
     Dates: start: 2004
  2. JANTOVEN [Interacting]
     Active Substance: WARFARIN SODIUM
     Indication: THROMBOSIS
     Dosage: 5 MG, UNK (5 MG 4 DAYS)
  3. JANTOVEN [Interacting]
     Active Substance: WARFARIN SODIUM
     Indication: COAGULOPATHY
     Dosage: 5 MG, 1X/DAY
     Route: 048
     Dates: start: 2009
  4. METOPROLOL. [Concomitant]
     Active Substance: METOPROLOL
     Indication: HYPERTENSION
     Dosage: UNK, 1X/DAY (ONE AND A HALF TABLET, ONCE A DAY)
     Dates: start: 2016
  5. CHANTIX [Suspect]
     Active Substance: VARENICLINE TARTRATE
     Indication: SMOKING CESSATION THERAPY
     Dosage: 0.5 MG, 2X/DAY (0.5 MG, ONE IN THE MORNING AND ONE IN THE EVENING, ORALLY)
     Route: 048
  6. CHANTIX [Interacting]
     Active Substance: VARENICLINE TARTRATE
     Dosage: 1 MG, 2X/DAY
     Route: 048
     Dates: start: 201904

REACTIONS (7)
  - Constipation [Not Recovered/Not Resolved]
  - Nausea [Unknown]
  - Abdominal discomfort [Not Recovered/Not Resolved]
  - International normalised ratio increased [Recovering/Resolving]
  - Insomnia [Recovered/Resolved]
  - Drug interaction [Unknown]
  - Regurgitation [Unknown]

NARRATIVE: CASE EVENT DATE: 201904
